FAERS Safety Report 9040221 (Version 1)
Quarter: 2013Q1

REPORT INFORMATION
  Report Type: Report from Study
  Country: US (occurrence: US)
  Receive Date: 20130129
  Receipt Date: 20130129
  Transmission Date: 20140127
  Serious: No
  Sender: FDA-Public Use
  Company Number: US-ABBOTT-11P-163-0879951-00

PATIENT
  Sex: Female
  Weight: 76.27 kg

DRUGS (9)
  1. HUMIRA 40 MG/0.8 ML PEN [Suspect]
     Indication: PSORIASIS
     Route: 058
     Dates: start: 20110722
  2. ACTOS [Suspect]
     Indication: DIABETES MELLITUS
     Dates: start: 2009
  3. LANTUS [Concomitant]
     Indication: DIABETES MELLITUS
  4. GLIPIZIDE [Concomitant]
     Indication: DIABETES MELLITUS
  5. JANUVIA [Concomitant]
     Indication: DIABETES MELLITUS
  6. DIOVAN [Concomitant]
     Indication: BLOOD PRESSURE
  7. LATANOPROST EYE GTT [Concomitant]
     Indication: GLAUCOMA
  8. ALPHAGAN [Concomitant]
     Indication: GLAUCOMA
  9. MIRENA IUD [Concomitant]
     Indication: CONTRACEPTION

REACTIONS (1)
  - Hepatic enzyme increased [Not Recovered/Not Resolved]
